FAERS Safety Report 4935161-9 (Version None)
Quarter: 2006Q1

REPORT INFORMATION
  Report Type: 
  Country: None (occurrence: None)
  Receive Date: 20060306
  Receipt Date: 20060306
  Transmission Date: 20060701
  Serious: Yes (Other)
  Sender: FDA-Public Use
  Company Number: None

PATIENT
  Age: 19 Year
  Sex: Male
  Weight: 78.9259 kg

DRUGS (1)
  1. SOTRET [Suspect]
     Indication: ACNE CYSTIC
     Dosage: 40 MG DAILY PO
     Route: 048
     Dates: start: 20051228, end: 20060228

REACTIONS (2)
  - DRUG DOSE OMISSION [None]
  - DRY SKIN [None]
